FAERS Safety Report 4424083-8 (Version None)
Quarter: 2004Q3

REPORT INFORMATION
  Report Type: 
  Country: None (occurrence: None)
  Receive Date: 20040806
  Receipt Date: 20040803
  Transmission Date: 20050211
  Serious: Yes (Hospitalization)
  Sender: FDA-Public Use
  Company Number: 2004-FF-00450FF

PATIENT
  Age: 85 Year
  Sex: Male

DRUGS (1)
  1. CLONIDINE [Suspect]
     Dosage: 0.5 NR (0.5 NR) PO
     Route: 048
     Dates: start: 20010101, end: 20040624

REACTIONS (4)
  - DERMATITIS EXFOLIATIVE [None]
  - DRY SKIN [None]
  - ECZEMA [None]
  - PSORIASIS [None]
